FAERS Safety Report 23058059 (Version 1)
Quarter: 2023Q4

REPORT INFORMATION
  Report Type: Spontaneous
  Country: JP (occurrence: JP)
  Receive Date: 20231012
  Receipt Date: 20231012
  Transmission Date: 20240109
  Serious: Yes (Other)
  Sender: FDA-Public Use
  Company Number: JP-CHUGAI-2023036160AA

PATIENT
  Age: 47 Year
  Sex: Female
  Weight: 56.2 kg

DRUGS (5)
  1. TECENTRIQ [Suspect]
     Active Substance: ATEZOLIZUMAB
     Indication: Breast cancer
     Dosage: 840 MILLIGRAM
     Route: 065
     Dates: start: 20230515, end: 20230626
  2. ABRAXANE [Concomitant]
     Active Substance: PACLITAXEL
     Indication: Breast cancer
     Dosage: 145 MILLIGRAM
     Dates: start: 20230515, end: 20230626
  3. LOXOPROFEN [Concomitant]
     Active Substance: LOXOPROFEN
     Dosage: UNK
     Dates: start: 20230420
  4. REBAMIPIDE [Concomitant]
     Active Substance: REBAMIPIDE
     Dosage: UNK
     Dates: start: 20230420
  5. TRAMADOL [Concomitant]
     Active Substance: TRAMADOL\TRAMADOL HYDROCHLORIDE
     Dosage: UNK
     Dates: start: 20230508

REACTIONS (1)
  - Hepatic function abnormal [Recovered/Resolved]

NARRATIVE: CASE EVENT DATE: 20230626
